FAERS Safety Report 7806826-6 (Version None)
Quarter: 2011Q4

REPORT INFORMATION
  Report Type: 
  Country: None (occurrence: None)
  Receive Date: 20111011
  Receipt Date: 20111005
  Transmission Date: 20120403
  Serious: Yes (Hospitalization)
  Sender: FDA-Public Use
  Company Number: IT-TEVA-304441ISR

PATIENT
  Sex: Male

DRUGS (2)
  1. FLUOROURACIL [Suspect]
  2. OXALIPLATIN [Suspect]

REACTIONS (1)
  - HAEMATEMESIS [None]
